FAERS Safety Report 5314755-5 (Version None)
Quarter: 2007Q2

REPORT INFORMATION
  Report Type: 
  Country: None (occurrence: None)
  Receive Date: 20070427
  Receipt Date: 20070412
  Transmission Date: 20071010
  Serious: Yes (Life-Threatening, Hospitalization, Other)
  Sender: FDA-Public Use
  Company Number: 2007RR-06469

PATIENT
  Age: 63 Year
  Sex: Male

DRUGS (7)
  1. LISINOPRIL [Suspect]
     Dosage: 10 MG, QD, ORAL
     Route: 048
     Dates: end: 20070107
  2. BECLOMETHASONE DIPROPIONATE [Concomitant]
  3. OMEPRAZOLE [Concomitant]
  4. PARACETAMOL (ACETAMINOPHEN/PARACETAMOL) [Concomitant]
  5. SALBUTAMOL (SALBUTAMOL) [Concomitant]
  6. SALMETEROL [Concomitant]
  7. TRIMOVATE [Concomitant]

REACTIONS (5)
  - ELECTROCARDIOGRAM T WAVE ABNORMAL [None]
  - PANCREATIC PSEUDOCYST [None]
  - PANCREATITIS ACUTE [None]
  - PANCREATITIS NECROTISING [None]
  - SPLENIC VEIN THROMBOSIS [None]
